FAERS Safety Report 19570055 (Version 2)
Quarter: 2021Q3

REPORT INFORMATION
  Report Type: Spontaneous
  Country: US (occurrence: US)
  Receive Date: 20210716
  Receipt Date: 20210728
  Transmission Date: 20211014
  Serious: Yes (Other)
  Sender: FDA-Public Use
  Company Number: US-ADVANZ PHARMA-202107005141

PATIENT

DRUGS (1)
  1. TRANYLCYPROMINE [Suspect]
     Active Substance: TRANYLCYPROMINE
     Indication: PRODUCT USED FOR UNKNOWN INDICATION
     Dosage: UNK, PARNATE (TABLET)
     Route: 065

REACTIONS (3)
  - Depression [Unknown]
  - Fear-related avoidance of activities [Unknown]
  - Fear [Unknown]
